FAERS Safety Report 16163711 (Version 1)
Quarter: 2019Q2

REPORT INFORMATION
  Report Type: Spontaneous
  Country: US (occurrence: US)
  Receive Date: 20190405
  Receipt Date: 20190405
  Transmission Date: 20190711
  Serious: No
  Sender: FDA-Public Use
  Company Number: US-VIFOR (INTERNATIONAL) INC.-VIT-2019-02508

PATIENT
  Age: 75 Year
  Sex: Male

DRUGS (9)
  1. TOPROL XL [Concomitant]
     Active Substance: METOPROLOL SUCCINATE
  2. ATORVASTATIN CALCIUM. [Concomitant]
     Active Substance: ATORVASTATIN CALCIUM
  3. METOPROLOL TARTRATE. [Concomitant]
     Active Substance: METOPROLOL TARTRATE
  4. AMIODARONE HCL [Concomitant]
     Active Substance: AMIODARONE HYDROCHLORIDE
  5. SPIRONOLACTONE. [Concomitant]
     Active Substance: SPIRONOLACTONE
  6. VELTASSA [Suspect]
     Active Substance: PATIROMER
     Indication: HYPERKALAEMIA
     Route: 048
     Dates: start: 20171219
  7. ASPIRIN. [Concomitant]
     Active Substance: ASPIRIN
  8. VELTASSA [Suspect]
     Active Substance: PATIROMER
     Indication: CHRONIC KIDNEY DISEASE
  9. ENTRESTO [Concomitant]
     Active Substance: SACUBITRIL\VALSARTAN

REACTIONS (2)
  - No adverse event [Unknown]
  - Treatment noncompliance [Unknown]

NARRATIVE: CASE EVENT DATE: 20190314
